FAERS Safety Report 9450162 (Version 1)
Quarter: 2013Q3

REPORT INFORMATION
  Report Type: Spontaneous
  Country: US (occurrence: US)
  Receive Date: 20130809
  Receipt Date: 20130809
  Transmission Date: 20140515
  Serious: No
  Sender: FDA-Public Use
  Company Number: US-GLAXOSMITHKLINE-A1009329A

PATIENT
  Age: 32 Year
  Sex: Female

DRUGS (4)
  1. REQUIP XL [Suspect]
     Indication: RESTLESS LEGS SYNDROME
     Dosage: 2MG PER DAY
     Route: 048
     Dates: start: 2010
  2. VIIBRYD [Concomitant]
  3. CLONAZEPAM [Concomitant]
  4. ZOLPIDEM [Concomitant]

REACTIONS (2)
  - Restlessness [Recovering/Resolving]
  - Restless legs syndrome [Unknown]
